FAERS Safety Report 7955536-3 (Version None)
Quarter: 2011Q4

REPORT INFORMATION
  Report Type: 
  Country: None (occurrence: None)
  Receive Date: 20111202
  Receipt Date: 20111124
  Transmission Date: 20120403
  Serious: Yes (Other)
  Sender: FDA-Public Use
  Company Number: FR-MERCK-1111FRA00056

PATIENT
  Age: 64 Year
  Sex: Female

DRUGS (3)
  1. ALTHIAZIDE AND SPIRONOLACTONE [Concomitant]
     Route: 048
  2. CELIPROLOL HYDROCHLORIDE [Concomitant]
     Route: 048
  3. ZETIA [Suspect]
     Route: 047
     Dates: start: 20070101

REACTIONS (3)
  - OEDEMATOUS PANCREATITIS [None]
  - HYDROCHOLECYSTIS [None]
  - PLEURAL EFFUSION [None]
